FAERS Safety Report 9821145 (Version 1)
Quarter: 2014Q1

REPORT INFORMATION
  Report Type: Spontaneous
  Country: US (occurrence: US)
  Receive Date: 20140116
  Receipt Date: 20140116
  Transmission Date: 20141002
  Serious: No
  Sender: FDA-Public Use
  Company Number: US-PFIZER INC-2014011420

PATIENT
  Age: 56 Year
  Sex: Female
  Weight: 60.8 kg

DRUGS (16)
  1. XELJANZ [Suspect]
     Indication: RHEUMATOID ARTHRITIS
     Dosage: 5 MG 1 TABLET, 2X/DAY
     Route: 048
     Dates: start: 201310
  2. ENBREL [Suspect]
     Indication: ILL-DEFINED DISORDER
     Dosage: 50 MG, WEEKLY
     Route: 058
     Dates: start: 201301
  3. VITAMIN D [Concomitant]
     Dosage: UNK
  4. OMEPRAZOLE [Concomitant]
     Dosage: UNK
  5. NASACORT AQ [Concomitant]
     Dosage: UNK
  6. LIPITOR [Concomitant]
     Dosage: UNK
  7. HYDROXYZINE HYDROCHLORIDE [Concomitant]
     Dosage: UNK
  8. GINKO BILOBA [Concomitant]
     Dosage: UNK
  9. GABAPENTIN [Concomitant]
     Dosage: UNK
  10. FOLIC ACID [Concomitant]
     Dosage: UNK
  11. FISH OIL [Concomitant]
     Dosage: UNK
  12. BLACK COHOSH [Concomitant]
     Dosage: UNK
  13. ASPIRIN (E.C.) [Concomitant]
     Dosage: UNK
  14. ALENDRONATE SODIUM [Concomitant]
     Dosage: UNK
  15. DICLOFENAC SODIUM [Concomitant]
     Dosage: UNK
  16. ORPHENADRINE CITRATE [Concomitant]
     Dosage: UNK

REACTIONS (3)
  - Fatigue [Unknown]
  - Upper respiratory tract infection [Unknown]
  - Nasopharyngitis [Unknown]
